FAERS Safety Report 8966426 (Version 1)
Quarter: 2012Q4

REPORT INFORMATION
  Report Type: 
  Country: US (occurrence: US)
  Receive Date: 20121217
  Receipt Date: 20121217
  Transmission Date: 20130627
  Serious: No
  Sender: FDA-Public Use
  Company Number: US-BAYER-2012-124710

PATIENT
  Age: 41 Year
  Sex: Female

DRUGS (1)
  1. AVELOX [Suspect]
     Indication: SINUS INFECTION
     Dosage: 1 DF, QD
     Route: 048
     Dates: start: 20121121, end: 20121125

REACTIONS (7)
  - Erythema [Recovering/Resolving]
  - Pruritus [Recovering/Resolving]
  - Skin disorder [Recovering/Resolving]
  - Muscle tightness [Recovering/Resolving]
  - Oedema peripheral [Recovering/Resolving]
  - Pain in extremity [Recovering/Resolving]
  - Skin discomfort [Recovering/Resolving]
